FAERS Safety Report 9675407 (Version 3)
Quarter: 2014Q2

REPORT INFORMATION
  Report Type: Spontaneous
  Country: ES (occurrence: ES)
  Receive Date: 20131107
  Receipt Date: 20140626
  Transmission Date: 20141212
  Serious: Yes (Death, Other)
  Sender: FDA-Public Use
  Company Number: ES-PFIZER INC-2013314907

PATIENT
  Age: 75 Year
  Sex: Male

DRUGS (5)
  1. VENLAFAXINE HCL [Suspect]
     Dosage: UNK
  2. TRAMADOL HCL [Suspect]
     Dosage: UNK
  3. DIAZEPAM [Suspect]
     Dosage: UNK
  4. CITALOPRAM [Suspect]
     Dosage: UNK
  5. FLURAZEPAM [Suspect]
     Dosage: UNK

REACTIONS (7)
  - Overdose [Fatal]
  - Completed suicide [Fatal]
  - Toxicity to various agents [Fatal]
  - Pulmonary oedema [Unknown]
  - Myocardial infarction [Unknown]
  - Gastric haemorrhage [Unknown]
  - Arteriosclerosis coronary artery [Unknown]
